FAERS Safety Report 7802429-8 (Version None)
Quarter: 2011Q4

REPORT INFORMATION
  Report Type: 
  Country: None (occurrence: None)
  Receive Date: 20111007
  Receipt Date: 20111003
  Transmission Date: 20120403
  Serious: Yes (Other)
  Sender: FDA-Public Use
  Company Number: US-TEVA-303629USA

PATIENT
  Sex: Female

DRUGS (1)
  1. AMPHETAMINE AND DEXTROAMPHETAMINE SALTS [Suspect]
     Dates: start: 20110916, end: 20110929

REACTIONS (3)
  - EYE DISORDER [None]
  - VISION BLURRED [None]
  - BLINDNESS [None]
